FAERS Safety Report 23623776 (Version 3)
Quarter: 2024Q3

REPORT INFORMATION
  Report Type: Report from Study
  Country: GB (occurrence: GB)
  Receive Date: 20240312
  Receipt Date: 20240709
  Transmission Date: 20241017
  Serious: Yes (Other)
  Sender: SANDOZ
  Company Number: GB-SANDOZ-SDZ2023GB065416

PATIENT
  Sex: Female

DRUGS (1)
  1. HYRIMOZ [Suspect]
     Active Substance: ADALIMUMAB-ADAZ
     Indication: Rheumatoid arthritis
     Dosage: 40 MG, EOW (40MG/0.4ML)
     Route: 058
     Dates: start: 20231109

REACTIONS (7)
  - Blood pressure increased [Unknown]
  - Diarrhoea [Not Recovered/Not Resolved]
  - Malabsorption [Unknown]
  - Tooth disorder [Unknown]
  - Abdominal discomfort [Unknown]
  - Nausea [Unknown]
  - Chest pain [Unknown]
